FAERS Safety Report 5994742-4 (Version None)
Quarter: 2008Q4

REPORT INFORMATION
  Report Type: 
  Country: None (occurrence: None)
  Receive Date: 20081209
  Receipt Date: 20081023
  Transmission Date: 20090506
  Serious: No
  Sender: FDA-Public Use
  Company Number: 002#2#2008-00680

PATIENT
  Age: 72 Year
  Sex: Female
  Weight: 55 kg

DRUGS (10)
  1. NEUPRO [Suspect]
     Indication: PARKINSON'S DISEASE
     Dosage: 2MG/24H,1 IN 2 D,TRANSDERMAL ; 2MG/24H,1 IN 1 D,TRANSDERMAL
     Route: 062
     Dates: start: 20080101, end: 20080831
  2. NEUPRO [Suspect]
     Indication: PARKINSON'S DISEASE
     Dosage: 2MG/24H,1 IN 2 D,TRANSDERMAL ; 2MG/24H,1 IN 1 D,TRANSDERMAL
     Route: 062
     Dates: start: 20080831, end: 20081001
  3. ZYPREXA [Concomitant]
  4. SINEMET CR [Concomitant]
  5. ELDEPRYL [Concomitant]
  6. AMANTADINE HCL [Concomitant]
  7. COMTAN [Concomitant]
  8. CLONAZEPAM [Concomitant]
  9. LISINOPRIL [Concomitant]
  10. SYNTHROID [Concomitant]

REACTIONS (4)
  - ABASIA [None]
  - DRUG ADMINISTRATION ERROR [None]
  - FREEZING PHENOMENON [None]
  - HALLUCINATION [None]
